FAERS Safety Report 8299509-2 (Version None)
Quarter: 2012Q2

REPORT INFORMATION
  Report Type: 
  Country: None (occurrence: None)
  Receive Date: 20120419
  Receipt Date: 20120418
  Transmission Date: 20120825
  Serious: Yes (Other)
  Sender: FDA-Public Use
  Company Number: US-PFIZER INC-2012096666

PATIENT
  Sex: Female
  Weight: 60 kg

DRUGS (4)
  1. CHANTIX [Suspect]
     Indication: SMOKING CESSATION THERAPY
     Dosage: 0.5 MG, 1X/DAY
     Route: 048
     Dates: start: 20090101, end: 20090101
  2. ALAVERT [Concomitant]
     Dosage: UNK
  3. CHANTIX [Suspect]
     Dosage: 0.5 MG, 1X/DAY
     Route: 048
     Dates: start: 20120416
  4. OMEPRAZOLE [Concomitant]
     Dosage: UNK

REACTIONS (1)
  - BLOOD IMMUNOGLOBULIN G DECREASED [None]
